FAERS Safety Report 8076870-5 (Version None)
Quarter: 2012Q1

REPORT INFORMATION
  Report Type: 
  Country: None (occurrence: None)
  Receive Date: 20120127
  Receipt Date: 20120118
  Transmission Date: 20120608
  Serious: Yes (Hospitalization, Other)
  Sender: FDA-Public Use
  Company Number: US-MERCK-1111USA00706

PATIENT
  Age: 61 Year
  Sex: Female

DRUGS (6)
  1. HORMONES (UNSPECIFIED) [Concomitant]
     Route: 065
     Dates: start: 19990101, end: 20071101
  2. ALENDRONATE SODIUM [Suspect]
     Indication: OSTEOPOROSIS
     Route: 048
     Dates: start: 20010301
  3. CALCIUM (UNSPECIFIED) AND VITAMIN D (UNSPECIFIED) [Concomitant]
     Indication: OSTEOPENIA
     Route: 065
  4. ALENDRONATE SODIUM [Suspect]
     Indication: OSTEOPOROSIS PROPHYLAXIS
     Route: 048
     Dates: start: 20010301
  5. FOSAMAX [Suspect]
     Indication: OSTEOPOROSIS
     Route: 048
     Dates: start: 20010305, end: 20100101
  6. FOSAMAX [Suspect]
     Indication: OSTEOPOROSIS PROPHYLAXIS
     Route: 048
     Dates: start: 20010305, end: 20100101

REACTIONS (28)
  - BLOOD TRIGLYCERIDES INCREASED [None]
  - FEMUR FRACTURE [None]
  - HYPERTENSION [None]
  - ULCER [None]
  - TREMOR [None]
  - OSTEOARTHRITIS [None]
  - DIARRHOEA [None]
  - UTERINE DISORDER [None]
  - DIZZINESS [None]
  - GOITRE [None]
  - HYPERLIPIDAEMIA [None]
  - MUSCULOSKELETAL PAIN [None]
  - GASTROOESOPHAGEAL REFLUX DISEASE [None]
  - FATIGUE [None]
  - BLOOD 25-HYDROXYCHOLECALCIFEROL DECREASED [None]
  - DERMATITIS CONTACT [None]
  - FLANK PAIN [None]
  - PAIN [None]
  - STOMATITIS [None]
  - BURSITIS [None]
  - FALL [None]
  - SPINAL DISORDER [None]
  - ADENOTONSILLECTOMY [None]
  - GROIN PAIN [None]
  - OCCULT BLOOD POSITIVE [None]
  - HYPOGLYCAEMIA [None]
  - APPENDIX DISORDER [None]
  - BLOOD SODIUM INCREASED [None]
